FAERS Safety Report 6915805-2 (Version None)
Quarter: 2010Q3

REPORT INFORMATION
  Report Type: 
  Country: None (occurrence: None)
  Receive Date: 20100810
  Receipt Date: 20100412
  Transmission Date: 20110219
  Serious: No
  Sender: FDA-Public Use
  Company Number: A0854629A

PATIENT
  Age: 43 Year
  Sex: Female

DRUGS (9)
  1. PAXIL [Suspect]
     Indication: MIGRAINE
     Dosage: 20MG PER DAY
     Route: 048
     Dates: start: 20100101
  2. KLONOPIN [Concomitant]
  3. LODINE [Concomitant]
  4. NABUMETONE [Concomitant]
  5. NAPROXIN [Concomitant]
  6. UNKNOWN MEDICATION [Concomitant]
  7. CELEBREX [Concomitant]
  8. IMITREX [Concomitant]
  9. ZOFRAN [Concomitant]

REACTIONS (1)
  - NAUSEA [None]
